FAERS Safety Report 6628175-4 (Version None)
Quarter: 2010Q1

REPORT INFORMATION
  Report Type: 
  Country: None (occurrence: None)
  Receive Date: 20100311
  Receipt Date: 20091116
  Transmission Date: 20100710
  Serious: No
  Sender: FDA-Public Use
  Company Number: A0817376A

PATIENT
  Age: 50 Year
  Sex: Female

DRUGS (2)
  1. NICORETTE [Suspect]
  2. NICORETTE [Suspect]

REACTIONS (5)
  - HYPERSENSITIVITY [None]
  - INTENTIONAL DRUG MISUSE [None]
  - SCAB [None]
  - SKIN HYPERTROPHY [None]
  - SWELLING FACE [None]
